FAERS Safety Report 10418700 (Version 2)
Quarter: 2014Q3

REPORT INFORMATION
  Report Type: Spontaneous
  Country: RU (occurrence: RU)
  Receive Date: 20140829
  Receipt Date: 20140910
  Transmission Date: 20150326
  Serious: Yes (Death)
  Sender: FDA-Public Use
  Company Number: RU-ASTRAZENECA-2014SE64157

PATIENT
  Age: 22685 Day
  Sex: Male
  Weight: 95 kg

DRUGS (13)
  1. ATORVASTATINE [Concomitant]
     Active Substance: ATORVASTATIN
     Indication: ACUTE CORONARY SYNDROME
     Route: 048
     Dates: start: 20140804
  2. ACTRAPID [Concomitant]
     Active Substance: INSULIN HUMAN
     Indication: TYPE 2 DIABETES MELLITUS
     Route: 058
     Dates: start: 20140804
  3. BRILINTA [Suspect]
     Active Substance: TICAGRELOR
     Indication: ACUTE MYOCARDIAL INFARCTION
     Route: 048
     Dates: start: 20140805
  4. ENALAPRIL [Concomitant]
     Active Substance: ENALAPRIL
     Indication: ACUTE CORONARY SYNDROME
     Route: 048
     Dates: start: 20140804
  5. HEPARIN [Concomitant]
     Active Substance: HEPARIN SODIUM
     Indication: ACUTE CORONARY SYNDROME
     Route: 040
     Dates: start: 20140804, end: 20140804
  6. HEPARIN [Concomitant]
     Active Substance: HEPARIN SODIUM
     Indication: ACUTE CORONARY SYNDROME
     Route: 041
     Dates: start: 20140804, end: 20140804
  7. COZAAR (LOSARTAN) [Concomitant]
  8. CARDIASK (ACETYLSALICYLIC ACID) [Concomitant]
     Indication: ACUTE CORONARY SYNDROME
     Route: 048
     Dates: start: 20140805
  9. VEROSPIRON (SPIRONOLACTONE) [Concomitant]
     Indication: ACUTE CORONARY SYNDROME
     Route: 048
  10. CORDARONE (AMIODARONE) [Concomitant]
     Indication: ACUTE CORONARY SYNDROME
     Route: 048
     Dates: start: 20140804, end: 20140805
  11. BRILINTA [Suspect]
     Active Substance: TICAGRELOR
     Indication: ACUTE MYOCARDIAL INFARCTION
     Route: 048
     Dates: start: 20140804
  12. FUROSEMIDE. [Concomitant]
     Active Substance: FUROSEMIDE
     Indication: ACUTE CORONARY SYNDROME
     Route: 048
     Dates: start: 20140804
  13. CEFAZOLIN [Concomitant]
     Active Substance: CEFAZOLIN
     Indication: ACUTE CORONARY SYNDROME
     Route: 040
     Dates: start: 20140805

REACTIONS (1)
  - Myocardial rupture [Fatal]

NARRATIVE: CASE EVENT DATE: 20140807
